FAERS Safety Report 9136958 (Version 3)
Quarter: 2013Q1

REPORT INFORMATION
  Report Type: Spontaneous
  Country: US (occurrence: US)
  Receive Date: 20130219
  Receipt Date: 20130327
  Transmission Date: 20140127
  Serious: Yes (Other)
  Sender: FDA-Public Use
  Company Number: US-RB-050030-13

PATIENT
  Age: 32 Year
  Sex: Female

DRUGS (4)
  1. SUBOXONE FILM [Suspect]
     Indication: DRUG DEPENDENCE
     Dosage: SUBOXONE FILM
     Route: 060
     Dates: start: 201208
  2. SUBOXONE TABLETS [Suspect]
     Indication: DRUG DEPENDENCE
     Route: 060
     Dates: start: 201007, end: 201208
  3. XANAX [Concomitant]
     Indication: ANXIETY
     Dosage: DOSING DETAILS UNKNOWN
     Route: 065
     Dates: start: 201108
  4. XANAX [Concomitant]
     Indication: ANXIETY
     Dosage: DOSING DETAILS UNKNOWN
     Route: 065
     Dates: start: 201108

REACTIONS (2)
  - Convulsion [Not Recovered/Not Resolved]
  - Anxiety [Not Recovered/Not Resolved]
